FAERS Safety Report 7597909-7 (Version None)
Quarter: 2011Q3

REPORT INFORMATION
  Report Type: 
  Country: None (occurrence: None)
  Receive Date: 20110708
  Receipt Date: 20110628
  Transmission Date: 20111222
  Serious: Yes (Hospitalization, Other)
  Sender: FDA-Public Use
  Company Number: US-ABBOTT-11P-163-0835653-00

PATIENT
  Sex: Female
  Weight: 52.21 kg

DRUGS (3)
  1. CLARITIN [Concomitant]
     Indication: HYPERSENSITIVITY
  2. VASOLINE [Concomitant]
     Indication: PSORIASIS
  3. HUMIRA [Suspect]
     Indication: PSORIASIS
     Dates: start: 20101101, end: 20110624

REACTIONS (11)
  - ARTHRALGIA [None]
  - ABASIA [None]
  - JOINT SWELLING [None]
  - PALPITATIONS [None]
  - OEDEMA PERIPHERAL [None]
  - BLOOD PRESSURE INCREASED [None]
  - CARDIOVASCULAR DISORDER [None]
  - BLOOD POTASSIUM DECREASED [None]
  - MALAISE [None]
  - SKIN HAEMORRHAGE [None]
  - DEHYDRATION [None]
